FAERS Safety Report 9546617 (Version 1)
Quarter: 2013Q3

REPORT INFORMATION
  Report Type: Spontaneous
  Country: CN (occurrence: CN)
  Receive Date: 20130924
  Receipt Date: 20130924
  Transmission Date: 20140515
  Serious: Yes (Other)
  Sender: FDA-Public Use
  Company Number: CN-JNJFOC-20130906091

PATIENT
  Age: 3 Year
  Sex: Female
  Weight: 14 kg

DRUGS (4)
  1. MOTRIN [Suspect]
     Indication: PYREXIA
     Route: 048
     Dates: start: 20130907
  2. MOTRIN [Suspect]
     Indication: PYREXIA
     Route: 048
     Dates: start: 20130909, end: 20130910
  3. CHINESE MEDICATION [Suspect]
     Indication: PYREXIA
     Route: 048
     Dates: start: 20130907
  4. CHINESE MEDICATION [Suspect]
     Indication: PYREXIA
     Route: 048
     Dates: start: 20130909

REACTIONS (2)
  - Bronchopneumonia [Recovered/Resolved]
  - Rash pruritic [Recovered/Resolved]
